FAERS Safety Report 5142305-5 (Version None)
Quarter: 2006Q4

REPORT INFORMATION
  Report Type: 
  Country: None (occurrence: None)
  Receive Date: 20061102
  Receipt Date: 20061025
  Transmission Date: 20070319
  Serious: Yes (Other)
  Sender: FDA-Public Use
  Company Number: 2006UW20678

PATIENT
  Age: 38 Year
  Sex: Female

DRUGS (3)
  1. SEROQUEL [Suspect]
     Route: 048
  2. CITALOPRAM HYDROBROMIDE [Suspect]
  3. LITHIUM CARBONATE [Suspect]

REACTIONS (5)
  - ASTHENIA [None]
  - DRUG LEVEL INCREASED [None]
  - MALAISE [None]
  - SOMNOLENCE [None]
  - TREMOR [None]
